FAERS Safety Report 21402681 (Version 4)
Quarter: 2022Q4

REPORT INFORMATION
  Report Type: Spontaneous
  Country: US (occurrence: US)
  Receive Date: 20221003
  Receipt Date: 20221103
  Transmission Date: 20230113
  Serious: Yes (Other)
  Sender: FDA-Public Use
  Company Number: US-PFIZER INC-202201196263

PATIENT
  Age: 73 Year
  Sex: Female
  Weight: 55.5 kg

DRUGS (3)
  1. ZIRABEV [Suspect]
     Active Substance: BEVACIZUMAB-BVZR
     Indication: Ovarian cancer metastatic
     Dosage: TWO 400MG VIALS, EVERY 21 DAYS
  2. ZIRABEV [Suspect]
     Active Substance: BEVACIZUMAB-BVZR
     Indication: Ovarian cancer
     Dosage: TWO 400MG VIALS, EVERY 21 DAYS
     Dates: start: 20220923
  3. METOPROLOL [Concomitant]
     Active Substance: METOPROLOL
     Indication: Hypertension
     Dosage: 25 MG, DAILY

REACTIONS (2)
  - Hypertension [Unknown]
  - Vital functions abnormal [Unknown]

NARRATIVE: CASE EVENT DATE: 20220914
